FAERS Safety Report 9164636 (Version 2)
Quarter: 2013Q2

REPORT INFORMATION
  Report Type: Spontaneous
  Country: US (occurrence: US)
  Receive Date: 20130315
  Receipt Date: 20130401
  Transmission Date: 20140414
  Serious: Yes (Hospitalization)
  Sender: FDA-Public Use
  Company Number: US-JNJFOC-20130306357

PATIENT
  Sex: Male
  Weight: 79.38 kg

DRUGS (11)
  1. RISPERDAL [Suspect]
     Indication: BIPOLAR DISORDER
     Route: 048
     Dates: start: 201209
  2. RISPERDAL [Suspect]
     Indication: BIPOLAR DISORDER
     Route: 048
     Dates: start: 20130219
  3. RISPERDAL [Suspect]
     Indication: BIPOLAR DISORDER
     Dosage: 25MG OR 35MG
     Route: 048
     Dates: start: 201210
  4. RISPERDAL [Suspect]
     Indication: SCHIZOPHRENIA
     Dosage: 25MG OR 35MG
     Route: 048
     Dates: start: 201210
  5. RISPERDAL [Suspect]
     Indication: SCHIZOPHRENIA
     Route: 048
     Dates: start: 201209
  6. RISPERDAL [Suspect]
     Indication: SCHIZOPHRENIA
     Route: 048
     Dates: start: 20130219
  7. RISPERIDONE [Suspect]
     Indication: BIPOLAR DISORDER
     Route: 048
     Dates: start: 201209
  8. RISPERIDONE [Suspect]
     Indication: SCHIZOPHRENIA
     Route: 048
     Dates: start: 201209
  9. XANAX [Concomitant]
     Route: 065
  10. INVEGA SUSTENNA [Concomitant]
     Route: 030
     Dates: start: 2011, end: 20120829
  11. ZYPREXA [Concomitant]
     Route: 065
     Dates: start: 2011, end: 201209

REACTIONS (8)
  - Thinking abnormal [Recovered/Resolved]
  - Pneumonia [Recovered/Resolved]
  - Hallucination, auditory [Unknown]
  - Pain [Recovered/Resolved]
  - Dehydration [Recovered/Resolved]
  - Drug ineffective [Not Recovered/Not Resolved]
  - Hypertension [Unknown]
  - Incorrect dose administered [Unknown]
